FAERS Safety Report 20598213 (Version 1)
Quarter: 2022Q1

REPORT INFORMATION
  Report Type: Report from Study
  Country: CZ (occurrence: CZ)
  Receive Date: 20220315
  Receipt Date: 20220315
  Transmission Date: 20220423
  Serious: Yes (Hospitalization)
  Sender: FDA-Public Use
  Company Number: CZ-MYLANLABS-2022M1019571

PATIENT
  Age: 59 Year
  Sex: Female

DRUGS (5)
  1. TELMISARTAN [Suspect]
     Active Substance: TELMISARTAN
     Indication: Hypertension
     Dosage: 40 MILLIGRAM, QD
     Route: 065
  2. HYDROCHLOROTHIAZIDE [Suspect]
     Active Substance: HYDROCHLOROTHIAZIDE
     Indication: Hypertension
     Dosage: 2.5 MILLIGRAM, QD
     Route: 065
  3. AMILORIDE [Suspect]
     Active Substance: AMILORIDE
     Indication: Hypertension
     Dosage: 25 MILLIGRAM, QD
     Route: 065
  4. WARFARIN [Suspect]
     Active Substance: WARFARIN
     Indication: Atrial fibrillation
     Dosage: UNK
     Route: 048
  5. ATORVASTATIN [Concomitant]
     Active Substance: ATORVASTATIN
     Indication: Dyslipidaemia
     Dosage: 20 MILLIGRAM, QD
     Route: 065

REACTIONS (1)
  - Spinal epidural haematoma [Recovered/Resolved]
